FAERS Safety Report 12540215 (Version 4)
Quarter: 2016Q3

REPORT INFORMATION
  Report Type: Report from Study
  Country: DE (occurrence: DE)
  Receive Date: 20160708
  Receipt Date: 20160819
  Transmission Date: 20161109
  Serious: Yes (Death, Hospitalization, Other)
  Sender: FDA-Public Use
  Company Number: PHHY2016DE093124

PATIENT
  Sex: Male
  Weight: 70 kg

DRUGS (4)
  1. EXJADE [Suspect]
     Active Substance: DEFERASIROX
     Indication: ESSENTIAL THROMBOCYTHAEMIA
     Dosage: 1 TABLET A 500 MG PER DAY (7.14 MG PER KG BODY WEIGHT)
     Route: 048
     Dates: start: 20160218, end: 20160611
  2. EXJADE [Suspect]
     Active Substance: DEFERASIROX
     Indication: MYELOPROLIFERATIVE NEOPLASM
  3. NOVAMINSULFON [Concomitant]
     Active Substance: METAMIZOLE
     Indication: PAIN PROPHYLAXIS
     Dosage: UP TO 30 OT, TID AS PER REQUEST
     Route: 065
     Dates: start: 20160218
  4. MCP [Concomitant]
     Active Substance: METOCLOPRAMIDE HYDROCHLORIDE
     Indication: PROPHYLAXIS OF NAUSEA AND VOMITING
     Dosage: UNK UNK, TID AS PER REQUEST
     Route: 065
     Dates: start: 20160218

REACTIONS (3)
  - Death [Fatal]
  - Bronchial carcinoma [Not Recovered/Not Resolved]
  - Pneumonia [Recovering/Resolving]

NARRATIVE: CASE EVENT DATE: 20160415
